FAERS Safety Report 16374625 (Version 1)
Quarter: 2019Q2

REPORT INFORMATION
  Report Type: Spontaneous
  Country: FR (occurrence: FR)
  Receive Date: 20190530
  Receipt Date: 20190530
  Transmission Date: 20190711
  Serious: Yes (Life-Threatening, Hospitalization, Other)
  Sender: FDA-Public Use
  Company Number: PHHY2019FR124840

PATIENT
  Sex: Female

DRUGS (12)
  1. ETOPOPHOS [Suspect]
     Active Substance: ETOPOSIDE PHOSPHATE
     Dosage: UNK
     Route: 065
  2. IFOSFAMIDE EG [Suspect]
     Active Substance: IFOSFAMIDE
     Indication: OSTEOSARCOMA
     Dosage: 3.56 G, QD
     Route: 042
     Dates: start: 20160720, end: 20160722
  3. GABAPENTIN. [Concomitant]
     Active Substance: GABAPENTIN
     Indication: PRODUCT USED FOR UNKNOWN INDICATION
     Route: 065
  4. FORLAX [Concomitant]
     Active Substance: POLYETHYLENE GLYCOL 4000
     Indication: PRODUCT USED FOR UNKNOWN INDICATION
     Route: 065
  5. LARGACTIL [Suspect]
     Active Substance: CHLORPROMAZINE
     Indication: PROPHYLAXIS OF NAUSEA AND VOMITING
     Dosage: 25 MG, QD
     Route: 042
     Dates: start: 20160720, end: 20160722
  6. ELUDRIL [Concomitant]
     Indication: PRODUCT USED FOR UNKNOWN INDICATION
     Route: 065
  7. ETOPOPHOS [Suspect]
     Active Substance: ETOPOSIDE PHOSPHATE
     Indication: OSTEOSARCOMA
     Dosage: 178 MG, BID
     Route: 042
     Dates: start: 20160722
  8. RIVOTRIL [Concomitant]
     Active Substance: CLONAZEPAM
     Indication: PRODUCT USED FOR UNKNOWN INDICATION
     Route: 065
  9. FRAGMINE [Concomitant]
     Active Substance: DALTEPARIN SODIUM
     Indication: PRODUCT USED FOR UNKNOWN INDICATION
     Route: 065
  10. ZOPHREN [Suspect]
     Active Substance: ONDANSETRON
     Indication: PROPHYLAXIS OF NAUSEA AND VOMITING
     Dosage: 16 MG, QD
     Route: 042
     Dates: start: 20160720, end: 20160722
  11. METHOTREXATE. [Suspect]
     Active Substance: METHOTREXATE
     Indication: OSTEOSARCOMA
     Dosage: UNK
     Route: 042
  12. MESNA. [Concomitant]
     Active Substance: MESNA
     Indication: PRODUCT USED FOR UNKNOWN INDICATION
     Route: 065

REACTIONS (7)
  - Coma [Recovered/Resolved]
  - Urinary incontinence [Recovered/Resolved]
  - Vision blurred [Recovering/Resolving]
  - Encephalopathy [Recovered/Resolved]
  - Anal incontinence [Recovered/Resolved]
  - Off label use [Unknown]
  - Contraindicated product administered [Unknown]

NARRATIVE: CASE EVENT DATE: 20160722
